FAERS Safety Report 6150858-3 (Version None)
Quarter: 2009Q2

REPORT INFORMATION
  Report Type: 
  Country: None (occurrence: None)
  Receive Date: 20090408
  Receipt Date: 20090402
  Transmission Date: 20091009
  Serious: Yes (Hospitalization)
  Sender: FDA-Public Use
  Company Number: SPV1-2009-00585

PATIENT
  Sex: Male

DRUGS (2)
  1. VYVANSE [Suspect]
     Dosage: 50 MG, 1X/DAY:QD, ORAL, 70 MG, 1X/DAY:QD, ORAL
     Route: 048
  2. TRIAMINIC-12 [Concomitant]

REACTIONS (2)
  - HYPOAESTHESIA FACIAL [None]
  - HYPOAESTHESIA ORAL [None]
